FAERS Safety Report 10387954 (Version 2)
Quarter: 2014Q3

REPORT INFORMATION
  Report Type: Spontaneous
  Country: FR (occurrence: FR)
  Receive Date: 20140815
  Receipt Date: 20140818
  Transmission Date: 20150326
  Serious: Yes (Hospitalization)
  Sender: FDA-Public Use
  Company Number: FR-PFIZER INC-2014225278

PATIENT
  Age: 86 Year
  Sex: Male

DRUGS (17)
  1. LYRICA [Suspect]
     Active Substance: PREGABALIN
     Indication: OCCIPITAL NEURALGIA
  2. MIANSERIN ARROW [Suspect]
     Active Substance: MIANSERIN
     Indication: DEPRESSION
     Dosage: 10 MG, UNK
     Route: 048
     Dates: start: 20140110
  3. ATORVASTATIN EG LABO [Suspect]
     Active Substance: ATORVASTATIN
     Dosage: 40 MG, DAILY
     Route: 048
     Dates: end: 201402
  4. LAMALINE [Suspect]
     Active Substance: ACETAMINOPHEN\CAFFEINE\OPIUM
     Dosage: 6 DF, DAILY
     Route: 048
     Dates: start: 20140116, end: 201402
  5. COVERSYL [Concomitant]
     Active Substance: PERINDOPRIL
     Dosage: UNK
  6. GAVISCON [Concomitant]
     Active Substance: ALUMINUM HYDROXIDE\MAGNESIUM CARBONATE
     Dosage: UNK
  7. LYRICA [Suspect]
     Active Substance: PREGABALIN
     Indication: NEURALGIA
     Dosage: 25 MG 2 DOSAGE-FORMS A DAY
     Route: 048
     Dates: start: 20140109, end: 20140115
  8. MIANSERIN ARROW [Suspect]
     Active Substance: MIANSERIN
     Dosage: 30 MG, UNK
     Route: 048
     Dates: start: 20140116, end: 201402
  9. LANTUS [Concomitant]
     Active Substance: INSULIN GLARGINE
     Dosage: UNK
  10. TANGANIL [Concomitant]
     Active Substance: ACETYLLEUCINE
     Dosage: UNK
  11. HALDOL [Concomitant]
     Active Substance: HALOPERIDOL
     Dosage: UNK
  12. INIPOMP [Concomitant]
     Active Substance: PANTOPRAZOLE SODIUM
     Dosage: UNK
  13. ZOLPIDEM TARTRATE. [Concomitant]
     Active Substance: ZOLPIDEM TARTRATE
     Dosage: UNK
  14. LYRICA [Suspect]
     Active Substance: PREGABALIN
     Indication: CERVICOBRACHIAL SYNDROME
     Dosage: 50 MG, 2X/DAY
     Route: 048
     Dates: start: 20140116, end: 201402
  15. AMLOR [Concomitant]
     Active Substance: AMLODIPINE BESYLATE
     Dosage: UNK
  16. MIANSERIN ARROW [Suspect]
     Active Substance: MIANSERIN
     Dosage: 20 MG, IN THE EVENING
     Route: 048
     Dates: end: 20140115
  17. PLAVIX [Concomitant]
     Active Substance: CLOPIDOGREL BISULFATE
     Dosage: UNK

REACTIONS (2)
  - Persecutory delusion [Unknown]
  - Cholestasis [Recovering/Resolving]

NARRATIVE: CASE EVENT DATE: 20140201
